FAERS Safety Report 8536249-6 (Version None)
Quarter: 2012Q3

REPORT INFORMATION
  Report Type: 
  Country: None (occurrence: None)
  Receive Date: 20120725
  Receipt Date: 20120719
  Transmission Date: 20120928
  Serious: No
  Sender: FDA-Public Use
  Company Number: US-PFIZER INC-2012175293

PATIENT
  Sex: Male
  Weight: 86.6 kg

DRUGS (1)
  1. ZYVOX [Suspect]
     Indication: URINARY TRACT INFECTION
     Dosage: 600 MG, 2X/DAY
     Route: 048
     Dates: start: 20120715, end: 20120718

REACTIONS (2)
  - INSOMNIA [None]
  - PLATELET COUNT DECREASED [None]
